FAERS Safety Report 16016387 (Version 1)
Quarter: 2019Q1

REPORT INFORMATION
  Report Type: Spontaneous
  Country: US (occurrence: US)
  Receive Date: 20190228
  Receipt Date: 20190228
  Transmission Date: 20190418
  Serious: Yes (Other)
  Sender: FDA-Public Use
  Company Number: US-ROCHE-2271451

PATIENT
  Sex: Female
  Weight: 72.57 kg

DRUGS (10)
  1. ZOFRAN [Concomitant]
     Active Substance: ONDANSETRON HYDROCHLORIDE
     Indication: NAUSEA
  2. EFFEXOR [Concomitant]
     Active Substance: VENLAFAXINE HYDROCHLORIDE
     Indication: DEPRESSION
     Route: 065
  3. CLONAZEPAM. [Suspect]
     Active Substance: CLONAZEPAM
     Route: 065
  4. CLONAZEPAM. [Suspect]
     Active Substance: CLONAZEPAM
     Route: 065
  5. LOMOTIL [Suspect]
     Active Substance: ATROPINE SULFATE\DIPHENOXYLATE HYDROCHLORIDE
     Indication: CROHN^S DISEASE
     Route: 048
     Dates: start: 201711
  6. MARIJUANA [Concomitant]
     Active Substance: CANNABIS SATIVA SUBSP. INDICA TOP
     Route: 065
  7. ALBUTEROL. [Concomitant]
     Active Substance: ALBUTEROL
     Indication: PRODUCT USED FOR UNKNOWN INDICATION
     Route: 065
  8. LANSOPRAZOLE. [Concomitant]
     Active Substance: LANSOPRAZOLE
  9. CLONAZEPAM. [Suspect]
     Active Substance: CLONAZEPAM
     Indication: ANXIETY
     Route: 065
  10. MARIJUANA [Concomitant]
     Active Substance: CANNABIS SATIVA SUBSP. INDICA TOP
     Indication: NAUSEA
     Route: 065

REACTIONS (7)
  - Anxiety [Not Recovered/Not Resolved]
  - Panic attack [Unknown]
  - Tremor [Not Recovered/Not Resolved]
  - Brain neoplasm [Not Recovered/Not Resolved]
  - Seizure [Not Recovered/Not Resolved]
  - Nicotinic acid deficiency [Not Recovered/Not Resolved]
  - Dizziness [Not Recovered/Not Resolved]
